FAERS Safety Report 5400016-2 (Version None)
Quarter: 2007Q3

REPORT INFORMATION
  Report Type: 
  Country: None (occurrence: None)
  Receive Date: 20070725
  Receipt Date: 20070711
  Transmission Date: 20080115
  Serious: Yes (Hospitalization)
  Sender: FDA-Public Use
  Company Number: 2007001262

PATIENT
  Age: 79 Year
  Sex: Female

DRUGS (9)
  1. MACUGEN [Suspect]
     Indication: MACULAR DEGENERATION
     Dosage: 0.3 MG (Q6WKS), INTRA-VITREAL
     Dates: start: 20060906
  2. SIMVASTATIN [Concomitant]
  3. ASPIRIN [Concomitant]
  4. TEMAZEPAM [Concomitant]
  5. DOSULEPIN (DOSULEPIN) [Concomitant]
  6. INDAPAMIDE [Concomitant]
  7. OMEPRAZOLE [Concomitant]
  8. NAPROXEN [Concomitant]
  9. ACETAMINOPHEN [Concomitant]

REACTIONS (3)
  - ANAEMIA [None]
  - DEEP VEIN THROMBOSIS [None]
  - DRUG DOSE OMISSION [None]
